FAERS Safety Report 8306623-1 (Version None)
Quarter: 2012Q1

REPORT INFORMATION
  Report Type: 
  Country: None (occurrence: None)
  Receive Date: 20120326
  Receipt Date: 20110426
  Transmission Date: 20120608
  Serious: Yes (Other)
  Sender: FDA-Public Use
  Company Number: PHHY2011US30256

PATIENT
  Age: 67 Year
  Sex: Male
  Weight: 100 kg

DRUGS (11)
  1. AMLODIPINE BESYLATE [Concomitant]
  2. ATIVAN [Concomitant]
  3. ASPIRIN [Concomitant]
  4. TASIGNA [Suspect]
     Indication: CHRONIC MYELOID LEUKAEMIA
     Dosage: 150 MG, BID, ORAL, 200 MG, BID, ORAL
     Route: 048
     Dates: start: 20110329, end: 20110411
  5. TASIGNA [Suspect]
     Indication: CHRONIC MYELOID LEUKAEMIA
     Dosage: 150 MG, BID, ORAL, 200 MG, BID, ORAL
     Route: 048
     Dates: start: 20110315, end: 20110328
  6. ENALAPRIL MALEATE [Concomitant]
  7. TERAZOSIN HCL [Concomitant]
  8. LEVETIRACETAM [Concomitant]
  9. OMEPRAZOLE [Concomitant]
  10. FLONASE [Concomitant]
  11. SIMVASTATIN [Concomitant]

REACTIONS (3)
  - DIZZINESS [None]
  - HEADACHE [None]
  - HANGOVER [None]
